FAERS Safety Report 6112553-6 (Version None)
Quarter: 2009Q1

REPORT INFORMATION
  Report Type: 
  Country: None (occurrence: None)
  Receive Date: 20090311
  Receipt Date: 20090311
  Transmission Date: 20090719
  Serious: Yes (Other)
  Sender: FDA-Public Use
  Company Number: None

PATIENT
  Sex: Female
  Weight: 52.1637 kg

DRUGS (2)
  1. LOTREL [Suspect]
     Indication: HYPERTENSION
     Dosage: 5-20 MG ONCE A DAY
  2. LOTREL [Suspect]
     Indication: HYPERTENSION
     Dosage: 5-20 MG ONCE A DAY
     Dates: start: 20081201

REACTIONS (11)
  - DEPRESSION [None]
  - DRUG INEFFECTIVE [None]
  - EAR INFECTION [None]
  - FATIGUE [None]
  - GASTROENTERITIS VIRAL [None]
  - INFLUENZA [None]
  - MALAISE [None]
  - MUSCULAR WEAKNESS [None]
  - PAIN [None]
  - SEXUAL DYSFUNCTION [None]
  - SINUSITIS [None]
